FAERS Safety Report 15533924 (Version 2)
Quarter: 2018Q4

REPORT INFORMATION
  Report Type: Spontaneous
  Country: JP (occurrence: JP)
  Receive Date: 20181019
  Receipt Date: 20181026
  Transmission Date: 20190205
  Serious: Yes (Other)
  Sender: FDA-Public Use
  Company Number: JP-PFIZER INC-2018409315

PATIENT
  Sex: Female

DRUGS (2)
  1. LYRICA [Suspect]
     Active Substance: PREGABALIN
     Indication: POST HERPETIC NEURALGIA
     Dosage: 150 MG (2 TABLETS), DAILY
     Route: 048
     Dates: start: 201802
  2. TRAMCET [Concomitant]
     Active Substance: ACETAMINOPHEN\TRAMADOL
     Indication: POST HERPETIC NEURALGIA
     Dosage: UNK
     Route: 048
     Dates: start: 201802

REACTIONS (8)
  - Constipation [Unknown]
  - Gait disturbance [Unknown]
  - Gastrointestinal sounds abnormal [Unknown]
  - Cachexia [Unknown]
  - Pain [Unknown]
  - Abdominal pain [Unknown]
  - Hallucination [Unknown]
  - Feeding disorder [Unknown]
